FAERS Safety Report 7486133-4 (Version None)
Quarter: 2011Q2

REPORT INFORMATION
  Report Type: 
  Country: None (occurrence: None)
  Receive Date: 20110517
  Receipt Date: 20110509
  Transmission Date: 20111010
  Serious: Yes (Hospitalization)
  Sender: FDA-Public Use
  Company Number: FR-PFIZER INC-FR-WYE-H01814107

PATIENT
  Age: 59 Year
  Sex: Female

DRUGS (5)
  1. FELDENE [Suspect]
     Indication: ARTHRALGIA
     Dosage: 20 MG (FREQUENCY UNSPECIFIED)
     Route: 030
     Dates: start: 20070816, end: 20070822
  2. RAMIPRIL [Suspect]
     Indication: ESSENTIAL HYPERTENSION
     Dosage: UNK
     Route: 048
     Dates: start: 20070615, end: 20070914
  3. MYOLASTAN [Suspect]
     Indication: ARTHRALGIA
     Dosage: UNK
     Route: 048
     Dates: start: 20070816, end: 20070826
  4. PANTOPRAZOLE [Suspect]
     Indication: PROPHYLAXIS
     Dosage: UNK
     Route: 048
     Dates: start: 20070816, end: 20070826
  5. PROPOFAN [Suspect]
     Indication: ARTHRALGIA
     Dosage: 457 MG (FREQUENCY UNSPECIFIED)
     Route: 048
     Dates: start: 20070816, end: 20070822

REACTIONS (2)
  - HENOCH-SCHONLEIN PURPURA [None]
  - RECTAL HAEMORRHAGE [None]
